FAERS Safety Report 6152058-X (Version None)
Quarter: 2009Q2

REPORT INFORMATION
  Report Type: 
  Country: None (occurrence: None)
  Receive Date: 20090408
  Receipt Date: 20090324
  Transmission Date: 20091009
  Serious: Yes (Hospitalization, Other)
  Sender: FDA-Public Use
  Company Number: 1000000541

PATIENT
  Age: 80 Year
  Sex: Female

DRUGS (6)
  1. CITALOPRAM HYDROBROMIDE [Suspect]
     Indication: PANIC ATTACK
     Dosage: 10 MG (1 IN 1 D), 20 MG (1 IN 1 D)
     Dates: start: 20060213
  2. ISOSORBIDE DINITRATE [Concomitant]
  3. ALDACTAZIDE-A [Concomitant]
  4. SIMVASTATIN [Concomitant]
  5. ACETYLSALICYLIC ACID SRT [Concomitant]
  6. DIGOXIN [Concomitant]

REACTIONS (11)
  - AKINESIA [None]
  - ATRIAL FIBRILLATION [None]
  - CHEST DISCOMFORT [None]
  - CONTUSION [None]
  - DELIRIUM [None]
  - DIZZINESS [None]
  - DRUG INTERACTION [None]
  - FALL [None]
  - INTERNATIONAL NORMALISED RATIO INCREASED [None]
  - PULMONARY HYPERTENSION [None]
  - SINUS BRADYCARDIA [None]
